FAERS Safety Report 10049129 (Version 1)
Quarter: 2014Q2

REPORT INFORMATION
  Report Type: Spontaneous
  Country: GR (occurrence: GR)
  Receive Date: 20140401
  Receipt Date: 20140401
  Transmission Date: 20141212
  Serious: Yes (Other)
  Sender: FDA-Public Use
  Company Number: GR-JNJFOC-20140315097

PATIENT
  Age: 12 Month
  Sex: Male

DRUGS (3)
  1. ZYRTEC [Suspect]
     Route: 064
  2. ZYRTEC [Suspect]
     Indication: PRODUCT USED FOR UNKNOWN INDICATION
     Route: 064
     Dates: start: 2010, end: 2010
  3. PULMICORT [Concomitant]
     Indication: PRODUCT USED FOR UNKNOWN INDICATION
     Route: 064

REACTIONS (3)
  - Ototoxicity [Unknown]
  - Hypoacusis [Unknown]
  - Foetal exposure during pregnancy [Recovered/Resolved]
